FAERS Safety Report 14351653 (Version 1)
Quarter: 2018Q1

REPORT INFORMATION
  Report Type: Report from Study
  Country: US (occurrence: US)
  Receive Date: 20180104
  Receipt Date: 20180104
  Transmission Date: 20180509
  Serious: Yes (Hospitalization, Other)
  Sender: FDA-Public Use
  Company Number: US-BAYER-2017-223837

PATIENT
  Age: 55 Year
  Sex: Male

DRUGS (1)
  1. NEXAVAR [Suspect]
     Active Substance: SORAFENIB
     Indication: HEPATOCELLULAR CARCINOMA
     Dosage: 200 MG, BID
     Route: 048
     Dates: start: 20171116

REACTIONS (22)
  - Exercise tolerance decreased [Not Recovered/Not Resolved]
  - Confusional state [None]
  - Glossodynia [None]
  - Ammonia increased [None]
  - Nausea [None]
  - Throat tightness [None]
  - Blood glucose increased [None]
  - Weight decreased [Recovering/Resolving]
  - Eating disorder [None]
  - Oral pain [None]
  - Occult blood positive [None]
  - Upper respiratory tract infection [Recovering/Resolving]
  - Pain [None]
  - Dry mouth [None]
  - Vomiting [None]
  - Tongue ulceration [None]
  - Stomatitis [None]
  - Pre-existing condition improved [None]
  - Varices oesophageal [None]
  - Haematochezia [None]
  - Fatigue [None]
  - Off label use [None]

NARRATIVE: CASE EVENT DATE: 201711
